FAERS Safety Report 8839411 (Version 1)
Quarter: 2012Q4

REPORT INFORMATION
  Report Type: Spontaneous
  Country: US (occurrence: None)
  Receive Date: 20121012
  Receipt Date: 20121012
  Transmission Date: 20130627
  Serious: Yes (Other)
  Sender: FDA-Public Use
  Company Number: None

PATIENT
  Age: 62 Year
  Sex: Male
  Weight: 69.4 kg

DRUGS (8)
  1. INTERFERON ALFA-2B [Suspect]
     Indication: CARCINOMA
     Dosage: 9 million units
     Dates: start: 20120716, end: 20120730
  2. INTERFERON ALFA-2B [Suspect]
     Indication: CARCINOMA
     Dosage: 3 million units
     Dates: start: 20120730, end: 20120813
  3. AVASTIN [Concomitant]
  4. VICODIN [Concomitant]
  5. OXYCONTIN [Concomitant]
  6. MEGACE [Concomitant]
  7. ZOFRAN [Concomitant]
  8. LORAZEPAM [Concomitant]

REACTIONS (1)
  - Tooth discolouration [None]
